FAERS Safety Report 5073324-5 (Version None)
Quarter: 2006Q3

REPORT INFORMATION
  Report Type: 
  Country: None (occurrence: None)
  Receive Date: 20060808
  Receipt Date: 20060727
  Transmission Date: 20061208
  Serious: Yes (Hospitalization)
  Sender: FDA-Public Use
  Company Number: NZ-JNJFOC-20060801240

PATIENT

DRUGS (2)
  1. DURAGESIC-100 [Suspect]
     Indication: DRUG USE FOR UNKNOWN INDICATION
     Route: 062
  2. RADIOTHERAPY [Concomitant]
     Route: 065

REACTIONS (5)
  - DEHYDRATION [None]
  - FEELING ABNORMAL [None]
  - HYPOVENTILATION [None]
  - PUPIL FIXED [None]
  - PYREXIA [None]
